FAERS Safety Report 20719027 (Version 1)
Quarter: 2022Q2

REPORT INFORMATION
  Report Type: Spontaneous
  Country: CN (occurrence: CN)
  Receive Date: 20220418
  Receipt Date: 20220418
  Transmission Date: 20220720
  Serious: Yes (Death, Life-Threatening, Hospitalization, Other)
  Sender: FDA-Public Use
  Company Number: CN-SA-2022SA132846

PATIENT
  Age: 68 Year
  Sex: Female

DRUGS (4)
  1. OXALIPLATIN [Suspect]
     Active Substance: OXALIPLATIN
     Indication: Chemotherapy
     Dosage: 130 MG, D1 IVGTT (14 DAY AS A CYCLE)
     Route: 042
     Dates: start: 20150608, end: 20151007
  2. LEUCOVORIN CALCIUM [Suspect]
     Active Substance: LEUCOVORIN CALCIUM
     Indication: Chemotherapy
     Dosage: 0.6 G, D1 IVGTT (14 DAY AS A CYCLE)
     Route: 042
     Dates: start: 20150608, end: 20151007
  3. FLUOROURACIL [Suspect]
     Active Substance: FLUOROURACIL
     Indication: Chemotherapy
     Dosage: 0.625 G, D1 (14 DAY AS A CYCLE)
     Route: 040
     Dates: start: 20150608, end: 20151007
  4. FLUOROURACIL [Suspect]
     Active Substance: FLUOROURACIL
     Dosage: 3.5 G, D1 IVGT (14 DAY AS A CYCLE)
     Route: 042
     Dates: start: 20150608, end: 20151007

REACTIONS (5)
  - Myelosuppression [Fatal]
  - Leukopenia [Fatal]
  - Neutropenia [Fatal]
  - Hepatobiliary infection [Fatal]
  - Sepsis [Fatal]

NARRATIVE: CASE EVENT DATE: 20151007
